FAERS Safety Report 22355939 (Version 1)
Quarter: 2023Q2

REPORT INFORMATION
  Report Type: Spontaneous
  Country: US (occurrence: US)
  Receive Date: 20230523
  Receipt Date: 20230523
  Transmission Date: 20230722
  Serious: No
  Sender: FDA-Public Use
  Company Number: US-JNJFOC-20230541787

PATIENT
  Sex: Male
  Weight: 98.972 kg

DRUGS (1)
  1. SPORANOX [Suspect]
     Active Substance: ITRACONAZOLE
     Indication: Onychomycosis
     Dosage: 112MG TABS OF THAT IN 28 DAYS
     Route: 065
     Dates: start: 202303

REACTIONS (6)
  - Incorrect dose administered [Unknown]
  - Product prescribing error [Unknown]
  - Hepatic enzyme increased [Not Recovered/Not Resolved]
  - Therapy cessation [Unknown]
  - Intentional overdose [Unknown]
  - Inappropriate schedule of product administration [Unknown]
